FAERS Safety Report 11228594 (Version 1)
Quarter: 2015Q2

REPORT INFORMATION
  Report Type: Spontaneous
  Country: IT (occurrence: IT)
  Receive Date: 20150630
  Receipt Date: 20150630
  Transmission Date: 20150821
  Serious: Yes (Other)
  Sender: FDA-Public Use
  Company Number: IT-ELI_LILLY_AND_COMPANY-IT201506009516

PATIENT
  Age: 54 Year
  Sex: Male

DRUGS (7)
  1. INSULIN HUMAN [Suspect]
     Active Substance: INSULIN HUMAN
     Indication: DIABETES MELLITUS
     Dosage: 10 IU, QD
     Route: 058
     Dates: start: 20150101, end: 20150420
  2. LANTUS [Suspect]
     Active Substance: INSULIN GLARGINE
     Indication: DIABETES MELLITUS
     Dosage: 6 IU, QD
     Route: 058
     Dates: start: 20150101, end: 20150420
  3. CARDIOASPIRIN [Concomitant]
     Active Substance: ASPIRIN
     Route: 048
  4. BISOPROLOL FUMARATE. [Concomitant]
     Active Substance: BISOPROLOL FUMARATE
     Dosage: 2.5 MG, UNK
     Route: 048
  5. SIMVASTATIN. [Concomitant]
     Active Substance: SIMVASTATIN
     Route: 048
  6. ATORVASTATIN [Concomitant]
     Active Substance: ATORVASTATIN
     Route: 048
  7. INSULIN HUMAN [Suspect]
     Active Substance: INSULIN HUMAN
     Dosage: 8 IU, QD
     Route: 058
     Dates: start: 20150101, end: 20150420

REACTIONS (2)
  - Retrograde amnesia [Recovering/Resolving]
  - Hypoglycaemic unconsciousness [Recovering/Resolving]

NARRATIVE: CASE EVENT DATE: 20150420
